FAERS Safety Report 16420749 (Version 2)
Quarter: 2019Q3

REPORT INFORMATION
  Report Type: Spontaneous
  Country: US (occurrence: US)
  Receive Date: 20190612
  Receipt Date: 20190708
  Transmission Date: 20191004
  Serious: No
  Sender: FDA-Public Use
  Company Number: US-BAUSCH-BL-2019-015679

PATIENT
  Age: 65 Year
  Sex: Female

DRUGS (2)
  1. UCERIS [Suspect]
     Active Substance: BUDESONIDE
     Indication: IRRITABLE BOWEL SYNDROME
     Dosage: STARTED: ABOUT 2 YEARS AGO
     Route: 065
     Dates: end: 2019
  2. UCERIS [Suspect]
     Active Substance: BUDESONIDE
     Indication: PRODUCT USE IN UNAPPROVED INDICATION

REACTIONS (6)
  - Product use in unapproved indication [Unknown]
  - Inability to afford medication [Unknown]
  - Therapy cessation [Unknown]
  - No adverse event [Unknown]
  - Therapeutic product effective for unapproved indication [Unknown]
  - Loss of personal independence in daily activities [Unknown]

NARRATIVE: CASE EVENT DATE: 2019
